FAERS Safety Report 7074893-6 (Version None)
Quarter: 2010Q4

REPORT INFORMATION
  Report Type: 
  Country: None (occurrence: None)
  Receive Date: 20101029
  Receipt Date: 20101015
  Transmission Date: 20110411
  Serious: Yes (Death, Other)
  Sender: FDA-Public Use
  Company Number: US-GENZYME-FLUD-1000332

PATIENT
  Age: 5 Year
  Sex: Male

DRUGS (6)
  1. FLUDARA [Suspect]
     Indication: BONE MARROW TRANSPLANT
     Dosage: 25 MG/M2, UNK
     Route: 042
  2. FLUDARA [Suspect]
     Indication: STEM CELL TRANSPLANT
  3. CYCLOPHOSPHAMIDE [Suspect]
     Indication: BONE MARROW TRANSPLANT
     Dosage: 50 MG/KG, UNK
     Route: 042
  4. CYCLOPHOSPHAMIDE [Suspect]
     Indication: STEM CELL TRANSPLANT
  5. CYCLOSPORINE [Concomitant]
     Indication: PROPHYLAXIS AGAINST GRAFT VERSUS HOST DISEASE
     Route: 065
  6. MYCOPHENOLATE MOFETIL [Concomitant]
     Dosage: 15 MG/KG, UNK
     Route: 065

REACTIONS (10)
  - ACUTE RESPIRATORY DISTRESS SYNDROME [None]
  - ADENOVIRUS INFECTION [None]
  - BACTERIAL INFECTION [None]
  - BK VIRUS INFECTION [None]
  - CYSTITIS HAEMORRHAGIC [None]
  - EPSTEIN-BARR VIRUS INFECTION [None]
  - HUMAN HERPESVIRUS 6 INFECTION [None]
  - HYPERBILIRUBINAEMIA [None]
  - MUCOSAL INFLAMMATION [None]
  - TRANSPLANT REJECTION [None]
